FAERS Safety Report 15488086 (Version 1)
Quarter: 2018Q4

REPORT INFORMATION
  Report Type: Spontaneous
  Country: US (occurrence: US)
  Receive Date: 20181003
  Receipt Date: 20181003
  Transmission Date: 20190205
  Serious: Yes (Hospitalization)
  Sender: FDA-Public Use
  Company Number: None

PATIENT
  Age: 77 Year
  Sex: Male
  Weight: 106.14 kg

DRUGS (3)
  1. WARFARIN [Suspect]
     Active Substance: WARFARIN
     Indication: DEEP VEIN THROMBOSIS
     Route: 048
     Dates: start: 20100917
  2. IBUPROFEN. [Suspect]
     Active Substance: IBUPROFEN
     Indication: PAIN
     Route: 048
     Dates: start: 20180628, end: 20180702
  3. WARFARIN [Suspect]
     Active Substance: WARFARIN
     Indication: PULMONARY EMBOLISM
     Route: 048
     Dates: start: 20100917

REACTIONS (10)
  - Peptic ulcer [None]
  - Acute kidney injury [None]
  - Oesophagitis [None]
  - Abdominal pain lower [None]
  - Anticoagulation drug level above therapeutic [None]
  - Gastritis [None]
  - Gastrointestinal haemorrhage [None]
  - Melaena [None]
  - Fall [None]
  - Haemoglobin decreased [None]

NARRATIVE: CASE EVENT DATE: 20180702
